FAERS Safety Report 7039224-6 (Version None)
Quarter: 2010Q3

REPORT INFORMATION
  Report Type: 
  Country: None (occurrence: None)
  Receive Date: 20100929
  Receipt Date: 20100415
  Transmission Date: 20110219
  Serious: No
  Sender: FDA-Public Use
  Company Number: 2010SCPR000528

PATIENT

DRUGS (2)
  1. FLUTAMIDE [Suspect]
     Indication: PROSTATE CANCER
     Route: 065
     Dates: start: 20080822
  2. LUPRON (LEUPRORELIN ACETATE) UNKNOWN [Concomitant]

REACTIONS (2)
  - BLADDER DISORDER [None]
  - CHROMATURIA [None]
